FAERS Safety Report 5150879-3 (Version None)
Quarter: 2006Q4

REPORT INFORMATION
  Report Type: 
  Country: None (occurrence: None)
  Receive Date: 20061108
  Receipt Date: 20061027
  Transmission Date: 20070319
  Serious: Yes (Death)
  Sender: FDA-Public Use
  Company Number: 2006133178

PATIENT

DRUGS (2)
  1. CYTOTEC [Suspect]
     Indication: DRUG EXPOSURE DURING PREGNANCY
     Dosage: PLACENTAL
     Dates: start: 20050101
  2. MIFEPRISTONE        (MIFEPRISTONE) [Suspect]
     Indication: DRUG EXPOSURE DURING PREGNANCY
     Dosage: PLACENTAL
     Route: 064
     Dates: start: 20050101

REACTIONS (5)
  - DRUG EXPOSURE DURING PREGNANCY [None]
  - FOETAL MOVEMENTS DECREASED [None]
  - INDUCED ABORTION FAILED [None]
  - INTRA-UTERINE DEATH [None]
  - SMALL FOR DATES BABY [None]
